FAERS Safety Report 7680547-5 (Version None)
Quarter: 2011Q3

REPORT INFORMATION
  Report Type: 
  Country: None (occurrence: None)
  Receive Date: 20110812
  Receipt Date: 20110808
  Transmission Date: 20111222
  Serious: Yes (Death)
  Sender: FDA-Public Use
  Company Number: AR-SANOFI-AVENTIS-2011SA051222

PATIENT
  Age: 56 Year
  Sex: Female
  Weight: 112.5 kg

DRUGS (16)
  1. CEFADROXIL [Concomitant]
     Dates: start: 20090628
  2. CARVEDILOL [Concomitant]
     Dates: start: 20090601
  3. METRONIDAZOLE [Concomitant]
     Dates: start: 20090625, end: 20090702
  4. PLACEBO [Suspect]
     Indication: THROMBOSIS PROPHYLAXIS
     Dates: start: 20090619
  5. VASELINE [Concomitant]
     Dates: start: 20090618
  6. RIFAMPIN [Concomitant]
     Dates: start: 20090620, end: 20090620
  7. MICONAZOLE [Concomitant]
     Dates: start: 20090625, end: 20090702
  8. RANITIDINE [Concomitant]
     Dates: start: 20090618, end: 20090701
  9. SPIRONOLACTONE [Concomitant]
     Dates: start: 20090618
  10. LEVOTHYROXINE SODIUM [Concomitant]
     Dates: start: 19940101
  11. ENALAPRIL MALEATE [Concomitant]
     Dates: start: 19830101
  12. OMEPRAZOLE [Concomitant]
     Dates: start: 20070101
  13. ENOXAPARIN SODIUM [Suspect]
     Indication: THROMBOSIS PROPHYLAXIS
     Route: 058
     Dates: start: 20090619, end: 20090702
  14. FUROSEMIDE [Concomitant]
     Dates: start: 20090601
  15. ASPIRIN [Concomitant]
     Dates: start: 20090617, end: 20090622
  16. HEPARIN [Concomitant]
     Dates: start: 20090617, end: 20090619

REACTIONS (1)
  - ISCHAEMIC STROKE [None]
